FAERS Safety Report 6483043-6 (Version None)
Quarter: 2009Q4

REPORT INFORMATION
  Report Type: 
  Country: None (occurrence: None)
  Receive Date: 20091209
  Receipt Date: 20091110
  Transmission Date: 20100525
  Serious: No
  Sender: FDA-Public Use
  Company Number: US-KINGPHARMUSA00001-K200901441

PATIENT
  Sex: Male

DRUGS (1)
  1. EMBEDA [Suspect]
     Dosage: UNK

REACTIONS (1)
  - RASH [None]
